FAERS Safety Report 13234906 (Version 1)
Quarter: 2017Q1

REPORT INFORMATION
  Report Type: Spontaneous
  Country: AR (occurrence: AR)
  Receive Date: 20170215
  Receipt Date: 20170215
  Transmission Date: 20170428
  Serious: Yes (Other)
  Sender: FDA-Public Use
  Company Number: AR-TOLMAR, INC.-2017AR001429

PATIENT
  Age: 62 Year
  Sex: Male

DRUGS (1)
  1. ELIGARD [Suspect]
     Active Substance: LEUPROLIDE ACETATE
     Indication: PROSTATE CANCER
     Dosage: 22.5 MG, UNK
     Route: 058
     Dates: start: 20160601, end: 20161031

REACTIONS (2)
  - Mastitis [Recovered/Resolved]
  - Gynaecomastia [Recovered/Resolved]

NARRATIVE: CASE EVENT DATE: 20160622
